FAERS Safety Report 5200851-X (Version None)
Quarter: 2007Q1

REPORT INFORMATION
  Report Type: 
  Country: None (occurrence: None)
  Receive Date: 20070103
  Receipt Date: 20061221
  Transmission Date: 20070707
  Serious: Yes (Other)
  Sender: FDA-Public Use
  Company Number: CHNY2006AU03480

PATIENT
  Age: 41 Year
  Sex: Male

DRUGS (1)
  1. NICOTINE [Suspect]
     Indication: SMOKING CESSATION THERAPY
     Dosage: 6-7 PIECES, QD, CHEWED
     Dates: start: 20061216, end: 20061220

REACTIONS (3)
  - CHEST PAIN [None]
  - DYSPNOEA [None]
  - PSYCHOSOMATIC DISEASE [None]
